FAERS Safety Report 5088194-9 (Version None)
Quarter: 2006Q3

REPORT INFORMATION
  Report Type: 
  Country: None (occurrence: None)
  Receive Date: 20060727
  Receipt Date: 20060620
  Transmission Date: 20061208
  Serious: Yes (Other)
  Sender: FDA-Public Use
  Company Number: 2006079821

PATIENT
  Age: 60 Year
  Sex: Male
  Weight: 99.7913 kg

DRUGS (2)
  1. LYRICA [Suspect]
     Indication: NEUROPATHY PERIPHERAL
     Dosage: 150 MG (75 MG 2 IN 1 D)
     Route: 065
     Dates: start: 20060515
  2. ELAVIL [Suspect]
     Indication: NEUROPATHY PERIPHERAL
     Dosage: 40 MG (10 MG, 4 IN 1 D)
     Route: 065
     Dates: start: 19860101

REACTIONS (5)
  - DRUG INTERACTION [None]
  - FEELING HOT [None]
  - HERPES SIMPLEX [None]
  - OEDEMA PERIPHERAL [None]
  - VERTIGO [None]
